FAERS Safety Report 8055788-8 (Version None)
Quarter: 2012Q1

REPORT INFORMATION
  Report Type: 
  Country: None (occurrence: None)
  Receive Date: 20120119
  Receipt Date: 20120117
  Transmission Date: 20120608
  Serious: Yes (Death, Hospitalization)
  Sender: FDA-Public Use
  Company Number: US-VERTEX PHARMACEUTICALS INC.-AE-2012-000919

PATIENT
  Sex: Female

DRUGS (3)
  1. PEG-INTRON [Concomitant]
     Indication: HEPATITIS C
     Dates: start: 20110916
  2. RIBAVIRIN [Concomitant]
     Indication: HEPATITIS C
     Dates: start: 20110916
  3. INCIVEK [Suspect]
     Indication: HEPATITIS C
     Dates: start: 20110916

REACTIONS (3)
  - MENINGITIS [None]
  - DIABETES MELLITUS [None]
  - LISTERIOSIS [None]
